FAERS Safety Report 23457231 (Version 11)
Quarter: 2025Q2

REPORT INFORMATION
  Report Type: Report from Study
  Country: DE (occurrence: DE)
  Receive Date: 20240130
  Receipt Date: 20250624
  Transmission Date: 20250716
  Serious: Yes (Hospitalization, Other)
  Sender: SANOFI AVENTIS
  Company Number: DE-002147023-NVSC2022DE021688

PATIENT
  Age: 66 Year
  Sex: Male
  Weight: 119 kg

DRUGS (393)
  1. TAMSULOSIN HYDROCHLORIDE [Suspect]
     Active Substance: TAMSULOSIN HYDROCHLORIDE
     Indication: Product used for unknown indication
     Dosage: 0.4 MG, QD (0.4 MG, ONCE DAILY (1-0-0))
     Route: 065
  2. TAMSULOSIN HYDROCHLORIDE [Suspect]
     Active Substance: TAMSULOSIN HYDROCHLORIDE
     Dosage: 0.4 MG, QD (0.4 MG, ONCE DAILY (1-0-0))
     Route: 065
  3. TAMSULOSIN HYDROCHLORIDE [Suspect]
     Active Substance: TAMSULOSIN HYDROCHLORIDE
     Dosage: 0.4 MG, QD (0.4 MG, ONCE DAILY (1-0-0))
     Route: 065
  4. TAMSULOSIN HYDROCHLORIDE [Suspect]
     Active Substance: TAMSULOSIN HYDROCHLORIDE
     Dosage: 0.4 MG, QD (0.4 MG, ONCE DAILY (1-0-0))
     Route: 065
  5. TAMSULOSIN HYDROCHLORIDE [Suspect]
     Active Substance: TAMSULOSIN HYDROCHLORIDE
     Dosage: 0.4 MG, QD (0.4 MG, ONCE DAILY (1-0-0))
     Route: 065
  6. ASPIRIN [Suspect]
     Active Substance: ASPIRIN
     Indication: Product used for unknown indication
     Dosage: 100 MG, QD (100 MG, ONCE DAILY (1-0-0))
     Route: 065
  7. ASPIRIN [Suspect]
     Active Substance: ASPIRIN
     Dosage: 100 MG, QD (1-0-0)
     Route: 065
  8. ASPIRIN [Suspect]
     Active Substance: ASPIRIN
     Dosage: 100 MG, QD
     Route: 065
  9. ASPIRIN [Suspect]
     Active Substance: ASPIRIN
  10. RAMIPRIL [Suspect]
     Active Substance: RAMIPRIL
     Indication: Product used for unknown indication
     Dosage: 5 MG, QD (5 MG, QD (2.5 MG, BID (1-0-1))
     Route: 065
  11. RAMIPRIL [Suspect]
     Active Substance: RAMIPRIL
     Dosage: 2.5 MG, BID (2.5 MG, TWICE DAILY (1-0-1))
     Route: 065
  12. RAMIPRIL [Suspect]
     Active Substance: RAMIPRIL
     Dosage: 4 MG, QD (2 MG, BID)
     Route: 065
  13. RAMIPRIL [Suspect]
     Active Substance: RAMIPRIL
     Dosage: 2 MG, BID 2.5 MG, Q12H (2.5 MG, TWICE DAILY (1-0-1)
     Route: 065
  14. SIMVASTATIN [Suspect]
     Active Substance: SIMVASTATIN
     Indication: Product used for unknown indication
     Dosage: 20 MG, QD (20 MG, ONCE DAILY (0-0-1)
     Route: 065
  15. COSENTYX [Suspect]
     Active Substance: SECUKINUMAB
     Indication: Psoriasis
     Dosage: 300 MG, MONTHLY (QMO)
     Route: 058
     Dates: start: 20160112, end: 20160119
  16. COSENTYX [Suspect]
     Active Substance: SECUKINUMAB
     Indication: Psoriatic arthropathy
  17. ZARATOR [ATORVASTATIN] [Concomitant]
     Indication: Product used for unknown indication
     Dosage: UNK, QD
     Route: 065
  18. ZARATOR [ATORVASTATIN] [Concomitant]
     Dosage: UNK, QD (0-0-1)
  19. ZARATOR [ATORVASTATIN] [Concomitant]
     Dosage: UNK, QD (0-0-1)
  20. ZARATOR [ATORVASTATIN] [Concomitant]
     Dosage: UNK, QD (0-0-1)
  21. ZARATOR [ATORVASTATIN] [Concomitant]
     Dosage: UNK, QD (0-0-1)
  22. ZARATOR [ATORVASTATIN] [Concomitant]
     Dosage: UNK, QD (0-0-1)
  23. ZARATOR [ATORVASTATIN] [Concomitant]
     Dosage: UNK, QD (0-0-1)
  24. ZARATOR [ATORVASTATIN] [Concomitant]
     Dosage: UNK, QD (0-0-1)
  25. ZARATOR [ATORVASTATIN] [Concomitant]
     Dosage: UNK, QD (0-0-1)
  26. ZARATOR [ATORVASTATIN] [Concomitant]
     Dosage: UNK, QD (0-0-1)
  27. ZARATOR [ATORVASTATIN] [Concomitant]
     Dosage: UNK, QD (0-0-1)
  28. ZARATOR [ATORVASTATIN] [Concomitant]
     Dosage: UNK, QD (0-0-1)
  29. ZARATOR [ATORVASTATIN] [Concomitant]
     Dosage: UNK, QD (0-0-1)
  30. ZARATOR [ATORVASTATIN] [Concomitant]
     Dosage: UNK, QD (0-0-1)
  31. ZARATOR [ATORVASTATIN] [Concomitant]
     Dosage: UNK, QD (0-0-1)
  32. TICAGRELOR [Concomitant]
     Active Substance: TICAGRELOR
     Indication: Product used for unknown indication
     Dosage: UNK, QD (UNK, QD UNK, BID (1-0-1)
     Route: 065
  33. TICAGRELOR [Concomitant]
     Active Substance: TICAGRELOR
     Dosage: UNK UNK, Q12H
     Route: 065
  34. TICAGRELOR [Concomitant]
     Active Substance: TICAGRELOR
     Route: 065
  35. TICAGRELOR [Concomitant]
     Active Substance: TICAGRELOR
     Dosage: UNK, Q12H (DOSE DESCRIPTION : UNK UNK, TWICE DAILY (1-0-1)
     Route: 065
  36. TICAGRELOR [Concomitant]
     Active Substance: TICAGRELOR
     Dosage: UNK UNK, BID
  37. TICAGRELOR [Concomitant]
     Active Substance: TICAGRELOR
     Dosage: UNK UNK, BID
  38. TICAGRELOR [Concomitant]
     Active Substance: TICAGRELOR
     Dosage: UNK UNK, BID
     Route: 065
  39. TICAGRELOR [Concomitant]
     Active Substance: TICAGRELOR
  40. TICAGRELOR [Concomitant]
     Active Substance: TICAGRELOR
     Dosage: UNK UNK, BID
  41. TICAGRELOR [Concomitant]
     Active Substance: TICAGRELOR
     Dosage: UNK UNK, BID ((1-0-1))
     Route: 065
  42. TICAGRELOR [Concomitant]
     Active Substance: TICAGRELOR
  43. TICAGRELOR [Concomitant]
     Active Substance: TICAGRELOR
     Dosage: UNK UNK, BID
  44. TICAGRELOR [Concomitant]
     Active Substance: TICAGRELOR
     Dosage: UNK, BID  ((1-0-1))
     Route: 065
  45. TICAGRELOR [Concomitant]
     Active Substance: TICAGRELOR
     Dosage: UNK UNK, BID
  46. TICAGRELOR [Concomitant]
     Active Substance: TICAGRELOR
     Dosage: UNK UNK, BID
  47. TICAGRELOR [Concomitant]
     Active Substance: TICAGRELOR
     Dosage: UNK, BID  ((1-0-1))
     Route: 065
  48. TICAGRELOR [Concomitant]
     Active Substance: TICAGRELOR
     Dosage: UNK UNK, BID
  49. TICAGRELOR [Concomitant]
     Active Substance: TICAGRELOR
  50. TICAGRELOR [Concomitant]
     Active Substance: TICAGRELOR
     Dosage: UNK UNK, BID
  51. TICAGRELOR [Concomitant]
     Active Substance: TICAGRELOR
  52. TICAGRELOR [Concomitant]
     Active Substance: TICAGRELOR
     Dosage: UNK UNK, BID
  53. NI LI AN [CANDESARTAN CILEXETIL] [Concomitant]
     Indication: Product used for unknown indication
     Dosage: UNK UNK, QD (UNK, BID (1-0-1))
     Route: 065
  54. NI LI AN [CANDESARTAN CILEXETIL] [Concomitant]
     Dosage: UNK, Q12H (UNK, Q12H DOSE DESCRIPTION : UNK)
  55. NI LI AN [CANDESARTAN CILEXETIL] [Concomitant]
     Dosage: UNK UNK, QD
  56. NI LI AN [CANDESARTAN CILEXETIL] [Concomitant]
     Dosage: UNK, BID (1-0-1)
  57. NI LI AN [CANDESARTAN CILEXETIL] [Concomitant]
     Dosage: UNK, Q12H
  58. NI LI AN [CANDESARTAN CILEXETIL] [Concomitant]
     Dosage: UNK, Q12H (UNK, Q12H DOSE DESCRIPTION : UNK)
  59. NI LI AN [CANDESARTAN CILEXETIL] [Concomitant]
     Dosage: UNK, BID (1-0-1)
  60. NI LI AN [CANDESARTAN CILEXETIL] [Concomitant]
     Dosage: UNK, BID (1-0-1)
  61. NI LI AN [CANDESARTAN CILEXETIL] [Concomitant]
     Dosage: UNK, Q12H
  62. NI LI AN [CANDESARTAN CILEXETIL] [Concomitant]
  63. NI LI AN [CANDESARTAN CILEXETIL] [Concomitant]
     Dosage: UNK, Q12H (UNK, Q12H DOSE DESCRIPTION : UNK)
  64. NI LI AN [CANDESARTAN CILEXETIL] [Concomitant]
     Dosage: UNK, Q12H (UNK, Q12H DOSE DESCRIPTION : UNK)
  65. NI LI AN [CANDESARTAN CILEXETIL] [Concomitant]
     Dosage: UNK, BID (1-0-1)
  66. NI LI AN [CANDESARTAN CILEXETIL] [Concomitant]
     Dosage: UNK, BID (1-0-1)
  67. NI LI AN [CANDESARTAN CILEXETIL] [Concomitant]
     Dosage: UNK, Q12H
  68. NI LI AN [CANDESARTAN CILEXETIL] [Concomitant]
     Dosage: UNK, BID (1-0-1)
  69. NI LI AN [CANDESARTAN CILEXETIL] [Concomitant]
     Dosage: UNK, Q12H (UNK, Q12H DOSE DESCRIPTION : UNK)
  70. NI LI AN [CANDESARTAN CILEXETIL] [Concomitant]
     Dosage: UNK, BID (1-0-1)
  71. NI LI AN [CANDESARTAN CILEXETIL] [Concomitant]
     Dosage: UNK, Q12H
  72. NI LI AN [CANDESARTAN CILEXETIL] [Concomitant]
  73. NI LI AN [CANDESARTAN CILEXETIL] [Concomitant]
     Dosage: UNK, Q12H (UNK, Q12H DOSE DESCRIPTION : UNK)
  74. NI LI AN [CANDESARTAN CILEXETIL] [Concomitant]
     Dosage: UNK, BID (1-0-1)
  75. NI LI AN [CANDESARTAN CILEXETIL] [Concomitant]
     Dosage: UNK, Q12H (UNK, Q12H DOSE DESCRIPTION : UNK)
  76. NI LI AN [CANDESARTAN CILEXETIL] [Concomitant]
     Dosage: UNK, BID (1-0-1)
  77. NI LI AN [CANDESARTAN CILEXETIL] [Concomitant]
     Dosage: UNK, Q12H
  78. NI LI AN [CANDESARTAN CILEXETIL] [Concomitant]
     Dosage: UNK, BID (1-0-1)
  79. NI LI AN [CANDESARTAN CILEXETIL] [Concomitant]
     Dosage: UNK, Q12H (UNK, Q12H DOSE DESCRIPTION : UNK)
  80. NI LI AN [CANDESARTAN CILEXETIL] [Concomitant]
     Dosage: UNK, BID (1-0-1)
  81. NI LI AN [CANDESARTAN CILEXETIL] [Concomitant]
     Dosage: UNK, Q12H (UNK, Q12H DOSE DESCRIPTION : UNK)
  82. NI LI AN [CANDESARTAN CILEXETIL] [Concomitant]
     Dosage: UNK, BID (1-0-1)
  83. NI LI AN [CANDESARTAN CILEXETIL] [Concomitant]
     Dosage: UNK, Q12H
  84. NI LI AN [CANDESARTAN CILEXETIL] [Concomitant]
     Dosage: UNK, BID (1-0-1)
  85. NI LI AN [CANDESARTAN CILEXETIL] [Concomitant]
     Dosage: UNK, Q12H (UNK, Q12H DOSE DESCRIPTION : UNK)
  86. NI LI AN [CANDESARTAN CILEXETIL] [Concomitant]
     Dosage: UNK, BID (1-0-1)
  87. NI LI AN [CANDESARTAN CILEXETIL] [Concomitant]
     Dosage: UNK, Q12H
  88. NI LI AN [CANDESARTAN CILEXETIL] [Concomitant]
  89. NI LI AN [CANDESARTAN CILEXETIL] [Concomitant]
     Dosage: UNK, Q12H (UNK, Q12H DOSE DESCRIPTION : UNK)
  90. NI LI AN [CANDESARTAN CILEXETIL] [Concomitant]
     Dosage: UNK, Q12H (UNK, Q12H DOSE DESCRIPTION : UNK)
  91. NI LI AN [CANDESARTAN CILEXETIL] [Concomitant]
     Dosage: UNK, Q12H
  92. NI LI AN [CANDESARTAN CILEXETIL] [Concomitant]
     Dosage: UNK, BID (1-0-1)
  93. NI LI AN [CANDESARTAN CILEXETIL] [Concomitant]
     Dosage: UNK, Q12H
  94. NI LI AN [CANDESARTAN CILEXETIL] [Concomitant]
     Dosage: UNK, BID (1-0-1)
  95. NI LI AN [CANDESARTAN CILEXETIL] [Concomitant]
     Dosage: UNK, Q12H (UNK, Q12H DOSE DESCRIPTION : UNK)
  96. PANTOPRAZOLE [Concomitant]
     Active Substance: PANTOPRAZOLE
     Indication: Product used for unknown indication
     Dosage: DOSE DESCRIPTION : UNK, QD (1-0-0)
  97. PANTOPRAZOLE [Concomitant]
     Active Substance: PANTOPRAZOLE
     Dosage: UNK, QD (1-0-0)
  98. PANTOPRAZOLE [Concomitant]
     Active Substance: PANTOPRAZOLE
  99. PANTOPRAZOLE [Concomitant]
     Active Substance: PANTOPRAZOLE
     Dosage: UNK, QD (1-0-0)
  100. PANTOPRAZOLE [Concomitant]
     Active Substance: PANTOPRAZOLE
  101. PANTOPRAZOLE [Concomitant]
     Active Substance: PANTOPRAZOLE
     Dosage: DOSE DESCRIPTION : UNK UNK, ONCE DAILY (1-0-0)
     Route: 065
  102. PANTOPRAZOLE [Concomitant]
     Active Substance: PANTOPRAZOLE
     Dosage: DOSE DESCRIPTION : UNK UNK, ONCE DAILY (1-0-0)
     Route: 065
  103. PANTOPRAZOLE [Concomitant]
     Active Substance: PANTOPRAZOLE
     Dosage: 40 MG, QD (1-0-1, THEN 1-0-0 FOR 2 WEEKS)
     Route: 065
  104. PANTOPRAZOLE [Concomitant]
     Active Substance: PANTOPRAZOLE
     Dosage: 40 MG QD
     Route: 065
  105. PANTOPRAZOLE [Concomitant]
     Active Substance: PANTOPRAZOLE
     Dosage: 40 MG, QD (UNK, QD, (1-0-0))
     Route: 065
  106. PANTOPRAZOLE [Concomitant]
     Active Substance: PANTOPRAZOLE
     Dosage: UNK, QD, (1-0-0)
     Route: 065
  107. PANTOPRAZOLE [Concomitant]
     Active Substance: PANTOPRAZOLE
     Dosage: UNK, QD, (1-0-0)
     Route: 065
  108. PANTOPRAZOLE [Concomitant]
     Active Substance: PANTOPRAZOLE
     Dosage: 40 MG, QD (UNK UNK, QD (1-0-0))
     Route: 065
  109. PANTOPRAZOLE [Concomitant]
     Active Substance: PANTOPRAZOLE
     Dosage: 40 MG, QD (UNK, QD, (1-0-0))
     Route: 065
  110. PANTOPRAZOLE [Concomitant]
     Active Substance: PANTOPRAZOLE
     Dosage: 40 MG (1-0-1, THEN 1-0-0 FOR 2 WEEKS)
     Route: 065
  111. PANTOPRAZOLE [Concomitant]
     Active Substance: PANTOPRAZOLE
     Dosage: UNK, QD, (1-0-0)
     Route: 065
  112. PANTOPRAZOLE [Concomitant]
     Active Substance: PANTOPRAZOLE
     Dosage: 40 MG, QD (1-0-1, THEN 1-0-0 FOR 2 WEEKS)
     Route: 065
  113. PANTOPRAZOLE [Concomitant]
     Active Substance: PANTOPRAZOLE
     Dosage: DOSE DESCRIPTION : UNK UNK, ONCE DAILY (1-0-0)
     Route: 065
  114. PANTOPRAZOLE [Concomitant]
     Active Substance: PANTOPRAZOLE
     Dosage: UNK, QD, ONCE DAILY (1-0-0)
     Route: 065
  115. PANTOPRAZOLE [Concomitant]
     Active Substance: PANTOPRAZOLE
     Dosage: 40 MG, QD (UNK, QD, (1-0-0))
     Route: 065
  116. PANTOPRAZOLE [Concomitant]
     Active Substance: PANTOPRAZOLE
     Dosage: 40 MG, QD (UNK, QD, (1-0-0))
     Route: 065
  117. PANTOPRAZOLE [Concomitant]
     Active Substance: PANTOPRAZOLE
     Dosage: UNK, QD (1-0-0)
     Route: 065
  118. PANTOPRAZOLE [Concomitant]
     Active Substance: PANTOPRAZOLE
     Dosage: UNK, QD, (1-0-0)
     Route: 065
  119. PANTOPRAZOLE [Concomitant]
     Active Substance: PANTOPRAZOLE
     Dosage: UNK, QD, (1-0-0)
     Route: 065
  120. PANTOPRAZOLE [Concomitant]
     Active Substance: PANTOPRAZOLE
     Dosage: 40 MG, QD (UNK UNK, QD (1-0-0))
     Route: 065
  121. PANTOPRAZOLE [Concomitant]
     Active Substance: PANTOPRAZOLE
     Dosage: 40 MG, QD
     Route: 065
  122. PANTOPRAZOLE [Concomitant]
     Active Substance: PANTOPRAZOLE
     Dosage: UNK, QD, ONCE DAILY (1-0-0)
     Route: 065
  123. PANTOPRAZOLE [Concomitant]
     Active Substance: PANTOPRAZOLE
     Dosage: UNK, QD, (1-0-0)
     Route: 065
  124. PANTOPRAZOLE [Concomitant]
     Active Substance: PANTOPRAZOLE
     Dosage: UNK, QD, (1-0-0)
     Route: 065
  125. PANTOPRAZOLE [Concomitant]
     Active Substance: PANTOPRAZOLE
     Dosage: 40 MG, QD
     Route: 065
  126. PANTOPRAZOLE [Concomitant]
     Active Substance: PANTOPRAZOLE
     Dosage: UNK, QD (1-0-0)
     Route: 065
  127. PANTOPRAZOLE [Concomitant]
     Active Substance: PANTOPRAZOLE
     Dosage: UNK, QD, (1-0-0)
     Route: 065
  128. PANTOPRAZOLE [Concomitant]
     Active Substance: PANTOPRAZOLE
     Dosage: UNK, QD, (1-0-0)
     Route: 065
  129. PANTOPRAZOLE [Concomitant]
     Active Substance: PANTOPRAZOLE
     Dosage: UNK, QD (1-0-0)
     Route: 065
  130. PANTOPRAZOLE [Concomitant]
     Active Substance: PANTOPRAZOLE
     Dosage: UNK, QD (1-0-0)
     Route: 065
  131. PANTOPRAZOLE [Concomitant]
     Active Substance: PANTOPRAZOLE
     Dosage: UNK, QD, (1-0-0)
     Route: 065
  132. PANTOPRAZOLE [Concomitant]
     Active Substance: PANTOPRAZOLE
     Dosage: DOSE DESCRIPTION : UNK UNK, ONCE DAILY (1-0-0)
     Route: 065
  133. PANTOPRAZOLE [Concomitant]
     Active Substance: PANTOPRAZOLE
     Dosage: DOSE DESCRIPTION : UNK, QD (1-0-0)
     Route: 065
  134. PANTOPRAZOLE [Concomitant]
     Active Substance: PANTOPRAZOLE
     Dosage: 40 MG (1-0-1, THEN 1-0-0 FOR 2 WEEKS)
     Route: 065
  135. PANTOPRAZOLE [Concomitant]
     Active Substance: PANTOPRAZOLE
     Dosage: UNK, QD (1-0-0)
     Route: 065
  136. PANTOPRAZOLE [Concomitant]
     Active Substance: PANTOPRAZOLE
     Dosage: DOSE DESCRIPTION : UNK, QD (1-0-0)
     Route: 065
  137. PANTOPRAZOLE [Concomitant]
     Active Substance: PANTOPRAZOLE
     Route: 065
  138. PANTOPRAZOLE [Concomitant]
     Active Substance: PANTOPRAZOLE
     Dosage: UNK, QD (1-0-0)
     Route: 065
  139. PANTOPRAZOLE [Concomitant]
     Active Substance: PANTOPRAZOLE
     Dosage: UNK, QD, (1-0-0)
     Route: 065
  140. PANTOPRAZOLE [Concomitant]
     Active Substance: PANTOPRAZOLE
     Dosage: UNK UNK, QD (1-0-0)
     Route: 065
  141. PANTOPRAZOLE [Concomitant]
     Active Substance: PANTOPRAZOLE
     Dosage: 40 MG, QD (UNK UNK, QD (1-0-0))
     Route: 065
  142. PANTOPRAZOLE [Concomitant]
     Active Substance: PANTOPRAZOLE
     Route: 065
  143. PANTOPRAZOLE [Concomitant]
     Active Substance: PANTOPRAZOLE
     Route: 065
  144. PANTOPRAZOLE [Concomitant]
     Active Substance: PANTOPRAZOLE
     Route: 065
  145. PANTOPRAZOLE [Concomitant]
     Active Substance: PANTOPRAZOLE
     Route: 065
  146. PANTOPRAZOLE [Concomitant]
     Active Substance: PANTOPRAZOLE
     Route: 065
  147. PANTOPRAZOLE [Concomitant]
     Active Substance: PANTOPRAZOLE
     Route: 065
  148. PANTOPRAZOLE [Concomitant]
     Active Substance: PANTOPRAZOLE
     Dosage: UNK, QD, (1-0-0)
     Route: 065
  149. PANTOPRAZOLE [Concomitant]
     Active Substance: PANTOPRAZOLE
     Dosage: 40 MG, QD
     Route: 065
  150. PANTOPRAZOLE [Concomitant]
     Active Substance: PANTOPRAZOLE
     Dosage: 40 MG, QD
     Route: 065
  151. PANTOPRAZOLE [Concomitant]
     Active Substance: PANTOPRAZOLE
     Dosage: UNK, QD (1-0-0)
     Route: 065
  152. PANTOPRAZOLE [Concomitant]
     Active Substance: PANTOPRAZOLE
     Dosage: DOSE DESCRIPTION : UNK UNK, ONCE DAILY (1-0-0)
     Route: 065
  153. PANTOPRAZOLE [Concomitant]
     Active Substance: PANTOPRAZOLE
     Dosage: 40 MG, QD (UNK, QD, (1-0-0))
     Route: 065
  154. PANTOPRAZOLE [Concomitant]
     Active Substance: PANTOPRAZOLE
     Dosage: UNK, QD, (1-0-0)
     Route: 065
  155. PANTOPRAZOLE [Concomitant]
     Active Substance: PANTOPRAZOLE
     Dosage: 40 MG (1-0-1, THEN 1-0-0 FOR 2 WEEKS)
     Route: 065
  156. PANTOPRAZOLE [Concomitant]
     Active Substance: PANTOPRAZOLE
     Dosage: DOSE DESCRIPTION : UNK UNK, ONCE DAILY (1-0-0)
     Route: 065
  157. PANTOPRAZOLE [Concomitant]
     Active Substance: PANTOPRAZOLE
     Route: 065
  158. PANTOPRAZOLE [Concomitant]
     Active Substance: PANTOPRAZOLE
     Dosage: UNK, QD, (1-0-0)
     Route: 065
  159. PANTOPRAZOLE [Concomitant]
     Active Substance: PANTOPRAZOLE
     Dosage: UNK, QD (1-0-0)
     Route: 065
  160. PANTOPRAZOLE [Concomitant]
     Active Substance: PANTOPRAZOLE
     Dosage: UNK, QD (1-0-0)
     Route: 065
  161. PANTOPRAZOLE [Concomitant]
     Active Substance: PANTOPRAZOLE
     Route: 065
  162. PANTOPRAZOLE [Concomitant]
     Active Substance: PANTOPRAZOLE
     Dosage: 40 MG, QD (UNK, QD, (1-0-0))
     Route: 065
  163. PANTOPRAZOLE [Concomitant]
     Active Substance: PANTOPRAZOLE
     Dosage: 40 MG, QD (1-0-1, THEN 1-0-0 FOR 2 WEEKS)
     Route: 065
  164. PANTOPRAZOLE [Concomitant]
     Active Substance: PANTOPRAZOLE
     Dosage: DOSE DESCRIPTION : UNK UNK, ONCE DAILY (1-0-0)
     Route: 065
  165. BISOPROLOL [Concomitant]
     Active Substance: BISOPROLOL
     Indication: Product used for unknown indication
     Dosage: UNK, QD (ONCE DAILY (1-0-0))
  166. BISOPROLOL [Concomitant]
     Active Substance: BISOPROLOL
     Route: 065
  167. BISOPROLOL [Concomitant]
     Active Substance: BISOPROLOL
     Route: 065
  168. BISOPROLOL [Concomitant]
     Active Substance: BISOPROLOL
     Route: 065
  169. BISOPROLOL [Concomitant]
     Active Substance: BISOPROLOL
     Dosage: UNK, QD (ONCE DAILY (1-0-0)
     Route: 065
  170. BISOPROLOL [Concomitant]
     Active Substance: BISOPROLOL
     Dosage: UNK, QD (1-0-0)
  171. BISOPROLOL [Concomitant]
     Active Substance: BISOPROLOL
     Dosage: UNK, QD (1-0-0)
  172. BISOPROLOL [Concomitant]
     Active Substance: BISOPROLOL
     Dosage: UNK, QD (1-0-0)
  173. BISOPROLOL [Concomitant]
     Active Substance: BISOPROLOL
     Dosage: UNK, QD (1-0-0)
  174. BISOPROLOL [Concomitant]
     Active Substance: BISOPROLOL
     Dosage: UNK, QD (1-0-0)
  175. BISOPROLOL [Concomitant]
     Active Substance: BISOPROLOL
     Dosage: UNK, QD (1-0-0)
  176. BISOPROLOL [Concomitant]
     Active Substance: BISOPROLOL
     Dosage: UNK, QD (1-0-0)
  177. BISOPROLOL [Concomitant]
     Active Substance: BISOPROLOL
     Dosage: UNK, QD (1-0-0)
  178. BISOPROLOL [Concomitant]
     Active Substance: BISOPROLOL
     Dosage: UNK, QD (1-0-0)
  179. CLOPIDOGREL [Concomitant]
     Active Substance: CLOPIDOGREL BISULFATE
     Indication: Product used for unknown indication
  180. CLOPIDOGREL [Concomitant]
     Active Substance: CLOPIDOGREL BISULFATE
     Route: 065
  181. CLOPIDOGREL [Concomitant]
     Active Substance: CLOPIDOGREL BISULFATE
     Route: 065
  182. CLOPIDOGREL [Concomitant]
     Active Substance: CLOPIDOGREL BISULFATE
     Route: 065
  183. CLOPIDOGREL [Concomitant]
     Active Substance: CLOPIDOGREL BISULFATE
     Route: 065
  184. METRONIDAZOLE [Concomitant]
     Active Substance: METRONIDAZOLE
     Indication: Gastrointestinal inflammation
  185. METRONIDAZOLE [Concomitant]
     Active Substance: METRONIDAZOLE
     Indication: Product used for unknown indication
     Route: 065
  186. METRONIDAZOLE [Concomitant]
     Active Substance: METRONIDAZOLE
     Route: 065
  187. METRONIDAZOLE [Concomitant]
     Active Substance: METRONIDAZOLE
     Dosage: UNK, QD (0-0-1)
     Route: 065
  188. METRONIDAZOLE [Concomitant]
     Active Substance: METRONIDAZOLE
     Route: 065
  189. METRONIDAZOLE [Concomitant]
     Active Substance: METRONIDAZOLE
     Dosage: UNK UNKNOWN FREQ. (1-1-1 UP TO AND INCLUDING 15/12/2022)
     Route: 065
  190. METRONIDAZOLE [Concomitant]
     Active Substance: METRONIDAZOLE
     Route: 065
  191. METRONIDAZOLE [Concomitant]
     Active Substance: METRONIDAZOLE
     Route: 065
  192. METRONIDAZOLE [Concomitant]
     Active Substance: METRONIDAZOLE
     Route: 065
  193. METRONIDAZOLE [Concomitant]
     Active Substance: METRONIDAZOLE
     Route: 065
  194. METRONIDAZOLE [Concomitant]
     Active Substance: METRONIDAZOLE
     Route: 065
  195. METRONIDAZOLE [Concomitant]
     Active Substance: METRONIDAZOLE
     Route: 065
  196. METRONIDAZOLE [Concomitant]
     Active Substance: METRONIDAZOLE
     Route: 065
  197. METRONIDAZOLE [Concomitant]
     Active Substance: METRONIDAZOLE
     Route: 065
  198. METRONIDAZOLE [Concomitant]
     Active Substance: METRONIDAZOLE
     Route: 065
  199. METRONIDAZOLE [Concomitant]
     Active Substance: METRONIDAZOLE
     Route: 065
  200. METRONIDAZOLE [Concomitant]
     Active Substance: METRONIDAZOLE
     Route: 065
  201. METRONIDAZOLE [Concomitant]
     Active Substance: METRONIDAZOLE
     Route: 065
  202. METRONIDAZOLE [Concomitant]
     Active Substance: METRONIDAZOLE
     Route: 065
  203. METRONIDAZOLE [Concomitant]
     Active Substance: METRONIDAZOLE
     Route: 065
  204. METRONIDAZOLE [Concomitant]
     Active Substance: METRONIDAZOLE
     Route: 065
  205. METRONIDAZOLE [Concomitant]
     Active Substance: METRONIDAZOLE
     Route: 065
  206. METRONIDAZOLE [Concomitant]
     Active Substance: METRONIDAZOLE
     Route: 065
  207. METRONIDAZOLE [Concomitant]
     Active Substance: METRONIDAZOLE
     Route: 065
  208. METRONIDAZOLE [Concomitant]
     Active Substance: METRONIDAZOLE
     Route: 065
  209. METRONIDAZOLE [Concomitant]
     Active Substance: METRONIDAZOLE
     Route: 065
  210. METRONIDAZOLE [Concomitant]
     Active Substance: METRONIDAZOLE
     Route: 065
  211. METRONIDAZOLE [Concomitant]
     Active Substance: METRONIDAZOLE
     Route: 065
  212. METRONIDAZOLE [Concomitant]
     Active Substance: METRONIDAZOLE
     Route: 065
  213. METRONIDAZOLE [Concomitant]
     Active Substance: METRONIDAZOLE
     Route: 065
  214. METRONIDAZOLE [Concomitant]
     Active Substance: METRONIDAZOLE
     Route: 065
  215. METRONIDAZOLE [Concomitant]
     Active Substance: METRONIDAZOLE
     Route: 065
  216. METRONIDAZOLE [Concomitant]
     Active Substance: METRONIDAZOLE
  217. METRONIDAZOLE [Concomitant]
     Active Substance: METRONIDAZOLE
  218. METRONIDAZOLE [Concomitant]
     Active Substance: METRONIDAZOLE
  219. METRONIDAZOLE [Concomitant]
     Active Substance: METRONIDAZOLE
  220. METRONIDAZOLE [Concomitant]
     Active Substance: METRONIDAZOLE
  221. METRONIDAZOLE [Concomitant]
     Active Substance: METRONIDAZOLE
  222. METRONIDAZOLE [Concomitant]
     Active Substance: METRONIDAZOLE
  223. METRONIDAZOLE [Concomitant]
     Active Substance: METRONIDAZOLE
  224. METRONIDAZOLE [Concomitant]
     Active Substance: METRONIDAZOLE
  225. METRONIDAZOLE [Concomitant]
     Active Substance: METRONIDAZOLE
  226. METRONIDAZOLE [Concomitant]
     Active Substance: METRONIDAZOLE
  227. METRONIDAZOLE [Concomitant]
     Active Substance: METRONIDAZOLE
  228. METRONIDAZOLE [Concomitant]
     Active Substance: METRONIDAZOLE
  229. METRONIDAZOLE [Concomitant]
     Active Substance: METRONIDAZOLE
  230. METRONIDAZOLE [Concomitant]
     Active Substance: METRONIDAZOLE
  231. METRONIDAZOLE [Concomitant]
     Active Substance: METRONIDAZOLE
  232. METRONIDAZOLE [Concomitant]
     Active Substance: METRONIDAZOLE
  233. METRONIDAZOLE [Concomitant]
     Active Substance: METRONIDAZOLE
  234. TADALAFIL [Concomitant]
     Active Substance: TADALAFIL
     Indication: Product used for unknown indication
     Dosage: UNK, QD ((1-0-0))
  235. TADALAFIL [Concomitant]
     Active Substance: TADALAFIL
  236. TADALAFIL [Concomitant]
     Active Substance: TADALAFIL
     Route: 065
  237. TADALAFIL [Concomitant]
     Active Substance: TADALAFIL
     Route: 065
  238. TADALAFIL [Concomitant]
     Active Substance: TADALAFIL
     Route: 065
  239. TADALAFIL [Concomitant]
     Active Substance: TADALAFIL
     Route: 065
  240. TADALAFIL [Concomitant]
     Active Substance: TADALAFIL
     Dosage: UNK, QD (1-0-0)
     Route: 065
  241. TADALAFIL [Concomitant]
     Active Substance: TADALAFIL
     Route: 065
  242. TADALAFIL [Concomitant]
     Active Substance: TADALAFIL
     Route: 065
  243. TADALAFIL [Concomitant]
     Active Substance: TADALAFIL
     Route: 065
  244. TADALAFIL [Concomitant]
     Active Substance: TADALAFIL
     Route: 065
  245. TADALAFIL [Concomitant]
     Active Substance: TADALAFIL
     Dosage: UNK, QD (1-0-0)
     Route: 065
  246. TADALAFIL [Concomitant]
     Active Substance: TADALAFIL
     Dosage: UNK, QD (1-0-0)
     Route: 065
  247. TADALAFIL [Concomitant]
     Active Substance: TADALAFIL
     Route: 065
  248. TADALAFIL [Concomitant]
     Active Substance: TADALAFIL
     Route: 065
  249. TADALAFIL [Concomitant]
     Active Substance: TADALAFIL
     Dosage: UNK, QD (1-0-0)
     Route: 065
  250. TADALAFIL [Concomitant]
     Active Substance: TADALAFIL
     Route: 065
  251. TADALAFIL [Concomitant]
     Active Substance: TADALAFIL
     Dosage: UNK, QD (1-0-0)
     Route: 065
  252. TADALAFIL [Concomitant]
     Active Substance: TADALAFIL
     Route: 065
  253. TADALAFIL [Concomitant]
     Active Substance: TADALAFIL
     Dosage: UNK, QD (1-0-0)
     Route: 065
  254. TADALAFIL [Concomitant]
     Active Substance: TADALAFIL
     Route: 065
  255. TADALAFIL [Concomitant]
     Active Substance: TADALAFIL
     Dosage: UNK, QD (1-0-0)
     Route: 065
  256. TADALAFIL [Concomitant]
     Active Substance: TADALAFIL
     Route: 065
  257. TADALAFIL [Concomitant]
     Active Substance: TADALAFIL
     Dosage: UNK, QD (1-0-0)
     Route: 065
  258. TADALAFIL [Concomitant]
     Active Substance: TADALAFIL
     Route: 065
  259. TADALAFIL [Concomitant]
     Active Substance: TADALAFIL
     Dosage: UNK, QD (1-0-0)
     Route: 065
  260. TADALAFIL [Concomitant]
     Active Substance: TADALAFIL
     Route: 065
  261. TADALAFIL [Concomitant]
     Active Substance: TADALAFIL
     Dosage: UNK, QD (1-0-0)
     Route: 065
  262. TADALAFIL [Concomitant]
     Active Substance: TADALAFIL
     Route: 065
  263. TADALAFIL [Concomitant]
     Active Substance: TADALAFIL
     Dosage: UNK, QD (1-0-0)
     Route: 065
  264. TADALAFIL [Concomitant]
     Active Substance: TADALAFIL
     Route: 065
  265. TADALAFIL [Concomitant]
     Active Substance: TADALAFIL
     Dosage: UNK, QD (1-0-0)
     Route: 065
  266. TADALAFIL [Concomitant]
     Active Substance: TADALAFIL
     Route: 065
  267. TADALAFIL [Concomitant]
     Active Substance: TADALAFIL
     Dosage: UNK, QD (1-0-0)
     Route: 065
  268. TADALAFIL [Concomitant]
     Active Substance: TADALAFIL
     Route: 065
  269. TADALAFIL [Concomitant]
     Active Substance: TADALAFIL
     Dosage: UNK, QD (1-0-0)
     Route: 065
  270. TADALAFIL [Concomitant]
     Active Substance: TADALAFIL
     Route: 065
  271. TADALAFIL [Concomitant]
     Active Substance: TADALAFIL
     Dosage: UNK, QD (1-0-0)
     Route: 065
  272. TADALAFIL [Concomitant]
     Active Substance: TADALAFIL
     Route: 065
  273. TADALAFIL [Concomitant]
     Active Substance: TADALAFIL
     Dosage: UNK, QD
  274. TADALAFIL [Concomitant]
     Active Substance: TADALAFIL
     Dosage: UNK, QD
  275. TADALAFIL [Concomitant]
     Active Substance: TADALAFIL
     Dosage: UNK, QD
  276. TADALAFIL [Concomitant]
     Active Substance: TADALAFIL
  277. TADALAFIL [Concomitant]
     Active Substance: TADALAFIL
  278. TADALAFIL [Concomitant]
     Active Substance: TADALAFIL
     Dosage: UNK, QD
  279. TADALAFIL [Concomitant]
     Active Substance: TADALAFIL
     Dosage: UNK, QD
  280. TADALAFIL [Concomitant]
     Active Substance: TADALAFIL
     Dosage: UNK, QD
  281. TADALAFIL [Concomitant]
     Active Substance: TADALAFIL
     Dosage: UNK, QD
  282. TADALAFIL [Concomitant]
     Active Substance: TADALAFIL
     Dosage: UNK, QD
  283. AMOXICILLIN\CLAVULANIC ACID [Concomitant]
     Active Substance: AMOXICILLIN\CLAVULANIC ACID
     Indication: Gastrointestinal inflammation
  284. AMOXICILLIN\CLAVULANIC ACID [Concomitant]
     Active Substance: AMOXICILLIN\CLAVULANIC ACID
     Dosage: UNK, QD (UNK, TID)
  285. AMOXICILLIN\CLAVULANIC ACID [Concomitant]
     Active Substance: AMOXICILLIN\CLAVULANIC ACID
     Dosage: UNK, QD
  286. AMOXICILLIN\CLAVULANIC ACID [Concomitant]
     Active Substance: AMOXICILLIN\CLAVULANIC ACID
     Dosage: UNK, QD
  287. AMOXICILLIN\CLAVULANIC ACID [Concomitant]
     Active Substance: AMOXICILLIN\CLAVULANIC ACID
     Dosage: UNK, QD (1-0-0)
  288. AMOXICILLIN\CLAVULANIC ACID [Concomitant]
     Active Substance: AMOXICILLIN\CLAVULANIC ACID
  289. AMOXICILLIN\CLAVULANIC ACID [Concomitant]
     Active Substance: AMOXICILLIN\CLAVULANIC ACID
  290. AMOXICILLIN\CLAVULANIC ACID [Concomitant]
     Active Substance: AMOXICILLIN\CLAVULANIC ACID
     Dosage: UNK, QD
  291. AMOXICILLIN\CLAVULANIC ACID [Concomitant]
     Active Substance: AMOXICILLIN\CLAVULANIC ACID
     Dosage: UNK, QD
  292. AMOXICILLIN\CLAVULANIC ACID [Concomitant]
     Active Substance: AMOXICILLIN\CLAVULANIC ACID
     Dosage: UNK, QD
  293. AMOXICILLIN\CLAVULANIC ACID [Concomitant]
     Active Substance: AMOXICILLIN\CLAVULANIC ACID
     Dosage: UNK, QD
  294. AMOXICILLIN\CLAVULANIC ACID [Concomitant]
     Active Substance: AMOXICILLIN\CLAVULANIC ACID
     Dosage: UNK, QD
  295. AMOXICILLIN\CLAVULANIC ACID [Concomitant]
     Active Substance: AMOXICILLIN\CLAVULANIC ACID
     Dosage: UNK, QD
  296. AMOXICILLIN\CLAVULANIC ACID [Concomitant]
     Active Substance: AMOXICILLIN\CLAVULANIC ACID
     Dosage: UNK, QD
  297. AMOXICILLIN\CLAVULANIC ACID [Concomitant]
     Active Substance: AMOXICILLIN\CLAVULANIC ACID
     Dosage: UNK, QD
  298. AMOXICILLIN\CLAVULANIC ACID [Concomitant]
     Active Substance: AMOXICILLIN\CLAVULANIC ACID
     Dosage: UNK, QD
  299. AMOXICILLIN\CLAVULANIC ACID [Concomitant]
     Active Substance: AMOXICILLIN\CLAVULANIC ACID
  300. AMOXICILLIN\CLAVULANIC ACID [Concomitant]
     Active Substance: AMOXICILLIN\CLAVULANIC ACID
     Dosage: UNK, QD
  301. AMOXICILLIN\CLAVULANIC ACID [Concomitant]
     Active Substance: AMOXICILLIN\CLAVULANIC ACID
     Dosage: UNK, QD
  302. AMOXICILLIN\CLAVULANIC ACID [Concomitant]
     Active Substance: AMOXICILLIN\CLAVULANIC ACID
     Dosage: UNK, QD
  303. OMEPRAZOLE [Concomitant]
     Active Substance: OMEPRAZOLE
     Indication: Gastrooesophageal reflux disease
     Route: 065
     Dates: start: 20250103, end: 20250225
  304. SODIUM PICOSULFATE [Concomitant]
     Active Substance: SODIUM PICOSULFATE
     Indication: Constipation
     Route: 065
     Dates: start: 20250103, end: 20250225
  305. CALCIUM CARBONATE\CHOLECALCIFEROL [Concomitant]
     Active Substance: CALCIUM CARBONATE\CHOLECALCIFEROL
     Indication: Prophylaxis
     Route: 065
     Dates: start: 202406, end: 20250225
  306. MEDROL [Concomitant]
     Active Substance: METHYLPREDNISOLONE
     Indication: Contrast media allergy
     Route: 065
     Dates: start: 20241231, end: 20241231
  307. Magnecaps [Concomitant]
     Indication: Muscle spasms
     Route: 065
     Dates: start: 202406, end: 20250225
  308. ALIZAPRIDE HYDROCHLORIDE [Concomitant]
     Active Substance: ALIZAPRIDE HYDROCHLORIDE
     Indication: Malaise
     Route: 065
     Dates: start: 20241230, end: 20241230
  309. ACETAMINOPHEN [Concomitant]
     Active Substance: ACETAMINOPHEN
     Indication: Malaise
     Route: 065
     Dates: start: 20241229, end: 20241230
  310. MOVICOL [Concomitant]
     Active Substance: POLYETHYLENE GLYCOL 3350\POTASSIUM CHLORIDE\SODIUM BICARBONATE\SODIUM CHLORIDE
     Indication: Constipation
     Route: 065
     Dates: start: 20250103, end: 20250225
  311. INNOHEP [Concomitant]
     Active Substance: TINZAPARIN SODIUM
     Indication: Thrombosis prophylaxis
     Route: 065
     Dates: start: 20250117, end: 20250225
  312. ATORVASTATIN [Concomitant]
     Active Substance: ATORVASTATIN
     Indication: Product used for unknown indication
     Dosage: UNK, QD  (STRENGTH: 10,60,30,20,80,40 MG)
  313. ATORVASTATIN [Concomitant]
     Active Substance: ATORVASTATIN
     Dosage: UNK, QD  (0-0-1)
     Route: 065
  314. ATORVASTATIN [Concomitant]
     Active Substance: ATORVASTATIN
     Dosage: UNK, QD  (0-0-1)
     Route: 065
  315. ATORVASTATIN [Concomitant]
     Active Substance: ATORVASTATIN
     Dosage: UNK, QD  (0-0-1)
     Route: 065
  316. ATORVASTATIN [Concomitant]
     Active Substance: ATORVASTATIN
     Dosage: UNK, QD  (0-0-1)
     Route: 065
  317. ATORVASTATIN [Concomitant]
     Active Substance: ATORVASTATIN
     Dosage: UNK, QD  (0-0-1)
     Route: 065
  318. ATORVASTATIN [Concomitant]
     Active Substance: ATORVASTATIN
     Dosage: UNK, QD  (0-0-1)
     Route: 065
  319. ATORVASTATIN [Concomitant]
     Active Substance: ATORVASTATIN
     Dosage: UNK, QD  (0-0-1)
     Route: 065
  320. ATORVASTATIN [Concomitant]
     Active Substance: ATORVASTATIN
     Dosage: UNK, QD  (0-0-1)
     Route: 065
  321. ATORVASTATIN [Concomitant]
     Active Substance: ATORVASTATIN
     Dosage: UNK, QD  (0-0-1)
     Route: 065
  322. ATORVASTATIN [Concomitant]
     Active Substance: ATORVASTATIN
     Dosage: UNK, QD  (0-0-1)
     Route: 065
  323. ATORVASTATIN [Concomitant]
     Active Substance: ATORVASTATIN
     Dosage: UNK, QD  (0-0-1)
     Route: 065
  324. ATORVASTATIN [Concomitant]
     Active Substance: ATORVASTATIN
     Dosage: UNK, QD
     Route: 065
  325. ATORVASTATIN [Concomitant]
     Active Substance: ATORVASTATIN
     Dosage: UNK, QD  (0-0-1)
     Route: 065
  326. ATORVASTATIN [Concomitant]
     Active Substance: ATORVASTATIN
     Dosage: UNK, QD  (0-0-1)
     Route: 065
  327. ATORVASTATIN [Concomitant]
     Active Substance: ATORVASTATIN
     Dosage: UNK, QD  (0-0-1)
     Route: 065
  328. ATORVASTATIN [Concomitant]
     Active Substance: ATORVASTATIN
     Dosage: UNK, QD  (STRENGTH: 10,60,30,20,80,40 MG)
  329. ATORVASTATIN [Concomitant]
     Active Substance: ATORVASTATIN
     Dosage: UNK, QD
     Route: 065
  330. ATORVASTATIN [Concomitant]
     Active Substance: ATORVASTATIN
     Dosage: UNK, QD  (STRENGTH: 10,60,30,20,80,40 MG)
  331. ATORVASTATIN [Concomitant]
     Active Substance: ATORVASTATIN
     Dosage: UNK, QD
     Route: 065
  332. ATORVASTATIN [Concomitant]
     Active Substance: ATORVASTATIN
     Dosage: UNK, QD  (STRENGTH: 10,60,30,20,80,40 MG)
  333. ATORVASTATIN [Concomitant]
     Active Substance: ATORVASTATIN
     Dosage: UNK, QD
     Route: 065
  334. ATORVASTATIN [Concomitant]
     Active Substance: ATORVASTATIN
     Dosage: UNK, QD  (STRENGTH: 10,60,30,20,80,40 MG)
  335. ATORVASTATIN [Concomitant]
     Active Substance: ATORVASTATIN
     Dosage: UNK, QD  (STRENGTH: 10,60,30,20,80,40 MG)
  336. ATORVASTATIN [Concomitant]
     Active Substance: ATORVASTATIN
     Dosage: UNK, QD
     Route: 065
  337. ATORVASTATIN [Concomitant]
     Active Substance: ATORVASTATIN
     Dosage: UNK, QD  (STRENGTH: 10,60,30,20,80,40 MG)
  338. ATORVASTATIN [Concomitant]
     Active Substance: ATORVASTATIN
     Dosage: UNK, QD
     Route: 065
  339. ATORVASTATIN [Concomitant]
     Active Substance: ATORVASTATIN
     Dosage: UNK, QD  (STRENGTH: 10,60,30,20,80,40 MG)
  340. ATORVASTATIN [Concomitant]
     Active Substance: ATORVASTATIN
     Dosage: UNK, QD
     Route: 065
  341. ATORVASTATIN [Concomitant]
     Active Substance: ATORVASTATIN
     Dosage: UNK, QD  (STRENGTH: 10,60,30,20,80,40 MG)
  342. AUGMENTIN [Concomitant]
     Active Substance: AMOXICILLIN\CLAVULANATE POTASSIUM
     Indication: Infection prophylaxis
     Dates: start: 20250106, end: 20250112
  343. BECLOMETHASONE DIPROPIONATE\FORMOTEROL FUMARATE\GLYCOPYRROLATE [Concomitant]
     Active Substance: BECLOMETHASONE DIPROPIONATE\FORMOTEROL FUMARATE\GLYCOPYRROLATE
     Indication: Prophylaxis
     Dates: start: 2019, end: 20250225
  344. CANDESARTAN [Concomitant]
     Active Substance: CANDESARTAN
     Indication: Product used for unknown indication
     Dosage: UNK UNK, Q12H
  345. CANDESARTAN [Concomitant]
     Active Substance: CANDESARTAN
     Dosage: UNK, QD (UNK, QD UNK, BID (1-0-1))
  346. CANDESARTAN [Concomitant]
     Active Substance: CANDESARTAN
     Dosage: UNK, QD
  347. CANDESARTAN [Concomitant]
     Active Substance: CANDESARTAN
  348. CANDESARTAN [Concomitant]
     Active Substance: CANDESARTAN
     Dosage: UNK, Q12H (UNK, Q12H DOSE)
  349. CANDESARTAN [Concomitant]
     Active Substance: CANDESARTAN
  350. CANDESARTAN [Concomitant]
     Active Substance: CANDESARTAN
     Dosage: UNK, Q12H
  351. CANDESARTAN [Concomitant]
     Active Substance: CANDESARTAN
     Dosage: UNK, QD (UNK, QD UNK, BID (1-0-1))
  352. CANDESARTAN [Concomitant]
     Active Substance: CANDESARTAN
     Dosage: UNK, QD
  353. CANDESARTAN [Concomitant]
     Active Substance: CANDESARTAN
  354. CANDESARTAN [Concomitant]
     Active Substance: CANDESARTAN
     Dosage: UNK, Q12H (UNK, Q12H DOSE
  355. CANDESARTAN [Concomitant]
     Active Substance: CANDESARTAN
  356. CANDESARTAN [Concomitant]
     Active Substance: CANDESARTAN
     Dosage: UNK, Q12H
  357. CANDESARTAN [Concomitant]
     Active Substance: CANDESARTAN
  358. CANDESARTAN [Concomitant]
     Active Substance: CANDESARTAN
     Dosage: UNK, QD
  359. CANDESARTAN [Concomitant]
     Active Substance: CANDESARTAN
  360. CANDESARTAN [Concomitant]
     Active Substance: CANDESARTAN
     Dosage: UNK, QD
  361. CANDESARTAN [Concomitant]
     Active Substance: CANDESARTAN
     Dosage: UNK, Q12H
  362. CANDESARTAN [Concomitant]
     Active Substance: CANDESARTAN
  363. CANDESARTAN [Concomitant]
     Active Substance: CANDESARTAN
     Dosage: UNK, QD
  364. CANDESARTAN [Concomitant]
     Active Substance: CANDESARTAN
  365. CANDESARTAN [Concomitant]
     Active Substance: CANDESARTAN
  366. CANDESARTAN [Concomitant]
     Active Substance: CANDESARTAN
  367. CANDESARTAN [Concomitant]
     Active Substance: CANDESARTAN
     Dosage: UNK, Q12H
  368. CANDESARTAN [Concomitant]
     Active Substance: CANDESARTAN
  369. CANDESARTAN [Concomitant]
     Active Substance: CANDESARTAN
     Dosage: UNK, QD
  370. CANDESARTAN [Concomitant]
     Active Substance: CANDESARTAN
  371. CANDESARTAN [Concomitant]
     Active Substance: CANDESARTAN
  372. CANDESARTAN [Concomitant]
     Active Substance: CANDESARTAN
  373. CANDESARTAN [Concomitant]
     Active Substance: CANDESARTAN
     Dosage: UNK, Q12H
  374. CANDESARTAN [Concomitant]
     Active Substance: CANDESARTAN
  375. CANDESARTAN [Concomitant]
     Active Substance: CANDESARTAN
     Dosage: UNK, QD
  376. CANDESARTAN [Concomitant]
     Active Substance: CANDESARTAN
     Dosage: UNK, Q12H
  377. CANDESARTAN [Concomitant]
     Active Substance: CANDESARTAN
  378. CANDESARTAN [Concomitant]
     Active Substance: CANDESARTAN
     Dosage: UNK, QD
  379. CANDESARTAN [Concomitant]
     Active Substance: CANDESARTAN
  380. CANDESARTAN [Concomitant]
     Active Substance: CANDESARTAN
  381. CANDESARTAN [Concomitant]
     Active Substance: CANDESARTAN
  382. CANDESARTAN [Concomitant]
     Active Substance: CANDESARTAN
     Dosage: UNK, Q12H
  383. CANDESARTAN [Concomitant]
     Active Substance: CANDESARTAN
  384. CANDESARTAN [Concomitant]
     Active Substance: CANDESARTAN
     Dosage: UNK, QD
  385. CANDESARTAN [Concomitant]
     Active Substance: CANDESARTAN
     Dosage: UNK, Q12H
  386. CANDESARTAN [Concomitant]
     Active Substance: CANDESARTAN
  387. CANDESARTAN [Concomitant]
     Active Substance: CANDESARTAN
     Dosage: UNK, QD
  388. CANDESARTAN [Concomitant]
     Active Substance: CANDESARTAN
  389. CANDESARTAN [Concomitant]
     Active Substance: CANDESARTAN
  390. CANDESARTAN [Concomitant]
     Active Substance: CANDESARTAN
  391. CANDESARTAN [Concomitant]
     Active Substance: CANDESARTAN
     Dosage: UNK, Q12H
  392. CANDESARTAN [Concomitant]
     Active Substance: CANDESARTAN
  393. CANDESARTAN [Concomitant]
     Active Substance: CANDESARTAN
     Dosage: UNK, QD

REACTIONS (45)
  - Acute myocardial infarction [Recovered/Resolved]
  - Pancreatitis acute [Recovered/Resolved]
  - Pancreatitis acute [Recovered/Resolved]
  - Diverticulum intestinal haemorrhagic [Recovered/Resolved]
  - Blood loss anaemia [Recovered/Resolved]
  - Gastritis erosive [Unknown]
  - Diverticulum intestinal haemorrhagic [Recovered/Resolved]
  - Haematochezia [Recovered/Resolved]
  - Myocardial infarction [Recovered/Resolved]
  - Granuloma [Recovered/Resolved]
  - Diverticulum intestinal haemorrhagic [Recovered/Resolved]
  - Chronic coronary syndrome [Not Recovered/Not Resolved]
  - Thrombosis [Unknown]
  - Haematochezia [Recovered/Resolved]
  - Coronary artery stenosis [Recovered/Resolved]
  - Hepatic steatosis [Recovered/Resolved]
  - Diverticulum [Recovered/Resolved]
  - Hepatic steatosis [Recovered/Resolved]
  - Aortic aneurysm [Unknown]
  - Large intestine polyp [Unknown]
  - Colitis [Recovered/Resolved]
  - Gastritis [Recovered/Resolved]
  - Anaemia [Recovered/Resolved]
  - Rectal haemorrhage [Unknown]
  - Disease recurrence [Recovered/Resolved]
  - Intestinal polyp [Not Recovered/Not Resolved]
  - Blood glucose increased [Unknown]
  - Chest discomfort [Unknown]
  - Gastrooesophageal reflux disease [Recovered/Resolved]
  - Blood creatinine increased [Recovered/Resolved]
  - Obesity [Unknown]
  - Lipase increased [Unknown]
  - Haemoglobin decreased [Unknown]
  - Haemorrhoids [Recovered/Resolved]
  - Hiatus hernia [Recovered/Resolved]
  - General physical health deterioration [Unknown]
  - Mean cell haemoglobin increased [Unknown]
  - Haematocrit decreased [Unknown]
  - White blood cell count increased [Recovered/Resolved]
  - Red blood cell count decreased [Unknown]
  - Abdominal pain upper [Unknown]
  - Renal cyst [Unknown]
  - C-reactive protein increased [Recovered/Resolved]
  - Benign prostatic hyperplasia [Unknown]
  - Blood alkaline phosphatase increased [Unknown]

NARRATIVE: CASE EVENT DATE: 20200601
